FAERS Safety Report 8432525 (Version 2)
Quarter: 2013Q1

REPORT INFORMATION
  Report Type: Spontaneous
  Country: US (occurrence: US)
  Receive Date: 20120229
  Receipt Date: 20130211
  Transmission Date: 20140127
  Serious: Yes (Hospitalization, Other)
  Sender: FDA-Public Use
  Company Number: US-JNJFOC-20120211097

PATIENT
  Age: 18 Year
  Sex: Male

DRUGS (2)
  1. LEVAQUIN [Suspect]
     Indication: BRONCHITIS
     Route: 048
     Dates: start: 201101
  2. LEVAQUIN [Suspect]
     Indication: BRONCHITIS
     Route: 048
     Dates: start: 201002

REACTIONS (5)
  - Ligament rupture [Recovering/Resolving]
  - Tendon injury [Unknown]
  - Meniscus injury [Recovering/Resolving]
  - Ligament rupture [Unknown]
  - Joint injury [Unknown]
